FAERS Safety Report 14159734 (Version 1)
Quarter: 2017Q4

REPORT INFORMATION
  Report Type: Report from Study
  Country: US (occurrence: US)
  Receive Date: 20171103
  Receipt Date: 20171103
  Transmission Date: 20180321
  Serious: No
  Sender: FDA-Public Use
  Company Number: US-AMGEN-USASL2017094484

PATIENT
  Age: 86 Year
  Sex: Male
  Weight: 87.53 kg

DRUGS (27)
  1. FERROUS GLUCONATE [Concomitant]
     Active Substance: FERROUS GLUCONATE
     Dosage: 324 MG, QD
     Route: 048
     Dates: start: 20150616
  2. MAGNESIUM [Concomitant]
     Active Substance: MAGNESIUM
     Indication: MAGNESIUM DEFICIENCY
     Dosage: 250 MG, QD
     Route: 048
     Dates: start: 20161114
  3. VIT B 12 [Concomitant]
     Dosage: (1,000 MCG/ML) 1 ML, UNK
     Route: 030
     Dates: start: 20151110
  4. FLONASE [Concomitant]
     Active Substance: FLUTICASONE PROPIONATE
     Indication: EPISTAXIS
     Dosage: UNK UNK, INHALE 2 SPRAY QD
     Route: 045
     Dates: start: 20160217
  5. PROCRIT [Suspect]
     Active Substance: ERYTHROPOIETIN
     Indication: ANAEMIA OF CHRONIC DISEASE
     Dosage: 0.45 ML, Q2WK (10,000 UNITS/ML)
     Route: 058
     Dates: start: 20170614
  6. METOPROLOL SUCCINATE. [Concomitant]
     Active Substance: METOPROLOL SUCCINATE
     Dosage: 50 MG, UNK (1 TAB TWICE A DAY)
     Route: 048
     Dates: start: 20170203
  7. PREDNISONE. [Concomitant]
     Active Substance: PREDNISONE
     Indication: GOUT
     Dosage: 30 MG, QD (FOR 3 DAYS) (3 TABLET OF 10 MG EVERY DAY)
     Route: 048
     Dates: start: 20170606
  8. FUROSEMIDE. [Concomitant]
     Active Substance: FUROSEMIDE
     Dosage: 20 MG, QD
     Route: 048
     Dates: start: 20170103
  9. ISOSORBIDE MONONITRATE. [Concomitant]
     Active Substance: ISOSORBIDE MONONITRATE
     Dosage: 30 MG, QD (EXTENDED RELEASE 24 HR)
     Route: 048
     Dates: start: 20170306
  10. TRESIBA [Concomitant]
     Active Substance: INSULIN DEGLUDEC
     Dosage: 10 UNIT, UNK (EVENING)
     Dates: start: 20160525
  11. WARFARIN [Concomitant]
     Active Substance: WARFARIN
     Dosage: 4 MG, QD
     Route: 048
     Dates: start: 20170527
  12. ASPIRIN 81 [Concomitant]
     Active Substance: ASPIRIN
     Dosage: UNK UNK, QD
     Route: 048
     Dates: start: 20140423
  13. FUROSEMIDE. [Concomitant]
     Active Substance: FUROSEMIDE
     Dosage: PER KB 1/2 TAB DAILY
     Route: 048
     Dates: start: 20170524
  14. SIMVASTATIN. [Concomitant]
     Active Substance: SIMVASTATIN
     Dosage: 40 MG, QD
     Route: 048
     Dates: start: 20170306
  15. WARFARIN [Concomitant]
     Active Substance: WARFARIN
     Dosage: 2 MG, QD
     Route: 048
     Dates: start: 20161121
  16. TYLENOL [Concomitant]
     Active Substance: ACETAMINOPHEN
     Dosage: UNK UNK, AS NECESSARY
  17. IRON [Concomitant]
     Active Substance: IRON
     Indication: IRON DEFICIENCY ANAEMIA
     Dosage: UNK UNK, QD
  18. FUROSEMIDE. [Concomitant]
     Active Substance: FUROSEMIDE
     Dosage: UNK (MAY TAKE ADDITIONAL HALF TAB IN THE AFTERNOON IF SYMPTMATIC)
     Route: 048
     Dates: start: 20170606
  19. LISINOPRIL. [Concomitant]
     Active Substance: LISINOPRIL
     Dosage: 2.5 MG, QD
     Route: 048
     Dates: start: 20170410
  20. OMEPRAZOLE. [Concomitant]
     Active Substance: OMEPRAZOLE
     Indication: GASTROOESOPHAGEAL REFLUX DISEASE
     Dosage: 40 MG, QD (CPDR- CAPSULE,DELAYED RELEASE)
     Route: 048
     Dates: start: 20170306
  21. NITROSTAT [Concomitant]
     Active Substance: NITROGLYCERIN
     Dosage: 0.4 MG, AS NECESSARY (ONE SL PRN REPEAT IN 5MIN MDD 2)
     Route: 060
     Dates: start: 20161021
  22. NOVOLOG [Concomitant]
     Active Substance: INSULIN ASPART
     Dosage: 100 UNIT/ML UNK, UNK
     Route: 058
     Dates: start: 20150220
  23. TRADJENTA [Concomitant]
     Active Substance: LINAGLIPTIN
     Dosage: 5 MG, QD (FOR 90 DAYS)
     Route: 048
  24. WARFARIN [Concomitant]
     Active Substance: WARFARIN
     Dosage: 1 MG, QD (1-3 TABLETS)
     Route: 048
     Dates: start: 20141219
  25. WARFARIN [Concomitant]
     Active Substance: WARFARIN
     Dosage: 5 MG, QD
     Route: 048
     Dates: start: 20160108
  26. WARFARIN [Concomitant]
     Active Substance: WARFARIN
     Dosage: 5 MG, QD
     Route: 048
     Dates: start: 20161121
  27. VITAMIN C [Concomitant]
     Active Substance: ASCORBIC ACID
     Dosage: UNK

REACTIONS (1)
  - Orthopnoea [Not Recovered/Not Resolved]

NARRATIVE: CASE EVENT DATE: 201706
